FAERS Safety Report 6736478-8 (Version None)
Quarter: 2010Q2

REPORT INFORMATION
  Report Type: 
  Country: None (occurrence: None)
  Receive Date: 20100521
  Receipt Date: 20100517
  Transmission Date: 20101027
  Serious: Yes (Life-Threatening, Other)
  Sender: FDA-Public Use
  Company Number: US-ELI_LILLY_AND_COMPANY-US201005004758

PATIENT
  Sex: Female

DRUGS (8)
  1. HUMULIN N [Suspect]
     Dosage: 4 U, DAILY (1/D)
     Dates: start: 20090301, end: 20090301
  2. PREDNISONE [Concomitant]
  3. GLIPIZIDE [Concomitant]
  4. ACTOS [Concomitant]
  5. BYETTA [Concomitant]
  6. METFORMIN HCL [Concomitant]
  7. HUMIRA [Concomitant]
     Indication: ARTHRITIS
  8. ENBREL [Concomitant]
     Indication: ARTHRITIS

REACTIONS (3)
  - ANAPHYLACTIC SHOCK [None]
  - BLOOD PRESSURE DECREASED [None]
  - LOSS OF CONSCIOUSNESS [None]
